FAERS Safety Report 11563276 (Version 4)
Quarter: 2015Q4

REPORT INFORMATION
  Report Type: Report from Study
  Country: JP (occurrence: JP)
  Receive Date: 20150928
  Receipt Date: 20151127
  Transmission Date: 20160304
  Serious: Yes (Death, Life-Threatening, Hospitalization, Other)
  Sender: FDA-Public Use
  Company Number: PHJP2015JP016386

PATIENT
  Age: 67 Year
  Sex: Female
  Weight: 47 kg

DRUGS (8)
  1. GENERIC LETROZOLE [Suspect]
     Active Substance: LETROZOLE
     Indication: INVASIVE DUCTAL BREAST CARCINOMA
     Dosage: BLINDED
     Route: 048
     Dates: start: 20150728, end: 20150826
  2. GENERIC LETROZOLE [Suspect]
     Active Substance: LETROZOLE
     Dosage: UNK
     Route: 048
     Dates: start: 20150904, end: 20150906
  3. RANMARK [Concomitant]
     Active Substance: DENOSUMAB
     Indication: PRODUCT USED FOR UNKNOWN INDICATION
     Dosage: UNK
     Route: 065
     Dates: start: 20150721
  4. DENOTAS [Concomitant]
     Active Substance: CALCIUM CARBONATE\CHOLECALCIFEROL\MAGNESIUM CARBONATE
     Indication: PRODUCT USED FOR UNKNOWN INDICATION
     Dosage: UNK
     Route: 065
  5. MEDICON                            /02167701/ [Concomitant]
     Active Substance: DEXTROMETHORPHAN HYDROBROMIDE\POTASSIUM CREOSOTESULFONATE
     Indication: PRODUCT USED FOR UNKNOWN INDICATION
     Dosage: UNK
     Route: 065
  6. EURAX [Concomitant]
     Active Substance: CROTAMITON
     Indication: PRODUCT USED FOR UNKNOWN INDICATION
     Dosage: UNK
     Route: 065
     Dates: start: 20150831
  7. WHITE PETROLATUM [Concomitant]
     Active Substance: PETROLATUM
     Indication: PRODUCT USED FOR UNKNOWN INDICATION
     Dosage: UNK
     Route: 065
     Dates: start: 20150831
  8. ZOLPIDEM TARTRATE. [Concomitant]
     Active Substance: ZOLPIDEM TARTRATE
     Indication: PRODUCT USED FOR UNKNOWN INDICATION
     Dosage: UNK
     Route: 065
     Dates: start: 20150902

REACTIONS (16)
  - Malignant pleural effusion [Unknown]
  - Malaise [Not Recovered/Not Resolved]
  - Pneumonia [Unknown]
  - Cardiac failure [Not Recovered/Not Resolved]
  - Vomiting [Not Recovered/Not Resolved]
  - Metastases to bone [Unknown]
  - Vitamin B complex deficiency [Not Recovered/Not Resolved]
  - Dry eye [Not Recovered/Not Resolved]
  - Rash maculo-papular [Not Recovered/Not Resolved]
  - Invasive ductal breast carcinoma [Fatal]
  - Malignant neoplasm progression [Fatal]
  - Dehydration [Recovered/Resolved]
  - Dyspnoea [Unknown]
  - Metastases to spine [Unknown]
  - Constipation [Not Recovered/Not Resolved]
  - Insomnia [Not Recovered/Not Resolved]

NARRATIVE: CASE EVENT DATE: 20150825
